FAERS Safety Report 5322613-5 (Version None)
Quarter: 2007Q2

REPORT INFORMATION
  Report Type: 
  Country: None (occurrence: None)
  Receive Date: 20070511
  Receipt Date: 20070502
  Transmission Date: 20071010
  Serious: Yes (Death)
  Sender: FDA-Public Use
  Company Number: JP-SANOFI-SYNTHELABO-A01200704773

PATIENT
  Age: 68 Year
  Sex: Female

DRUGS (3)
  1. FLUOROURACIL [Suspect]
     Dosage: 500 MG/BODY IN BOLUS THEN 600 MG/BODY AS INFUSION
     Route: 042
     Dates: start: 20070220, end: 20070418
  2. LEUCOVORIN CALCIUM [Suspect]
     Route: 042
     Dates: start: 20070417, end: 20070418
  3. OXALIPLATIN [Suspect]
     Indication: COLON CANCER
     Route: 042
     Dates: start: 20070417, end: 20070417

REACTIONS (3)
  - INFECTION [None]
  - LEUKOPENIA [None]
  - NEUTROPENIA [None]
